FAERS Safety Report 10619806 (Version 1)
Quarter: 2014Q4

REPORT INFORMATION
  Report Type: Spontaneous
  Country: US (occurrence: None)
  Receive Date: 20141201
  Receipt Date: 20141201
  Transmission Date: 20150529
  Serious: Yes (Hospitalization)
  Sender: FDA-Public Use
  Company Number: None

PATIENT
  Age: 53 Year
  Sex: Female
  Weight: 90.72 kg

DRUGS (1)
  1. KENALOG [Suspect]
     Active Substance: TRIAMCINOLONE ACETONIDE
     Indication: TENDONITIS
     Dates: start: 20140811, end: 20140811

REACTIONS (11)
  - Dyspnoea [None]
  - Burning sensation [None]
  - Dizziness [None]
  - Fatigue [None]
  - Atrial tachycardia [None]
  - Vision blurred [None]
  - Oxygen saturation decreased [None]
  - Headache [None]
  - Blood pressure systolic increased [None]
  - Blood pressure decreased [None]
  - Memory impairment [None]

NARRATIVE: CASE EVENT DATE: 20140811
